FAERS Safety Report 16935017 (Version 1)
Quarter: 2019Q4

REPORT INFORMATION
  Report Type: Spontaneous
  Country: US (occurrence: US)
  Receive Date: 20191018
  Receipt Date: 20191018
  Transmission Date: 20200122
  Serious: No
  Sender: FDA-Public Use
  Company Number: US-PFIZER INC-2019445687

PATIENT
  Age: 51 Year
  Sex: Male
  Weight: 79.38 kg

DRUGS (3)
  1. METHAMPHETAMINE HCL [Concomitant]
     Active Substance: METHAMPHETAMINE HYDROCHLORIDE
     Dosage: UNK
  2. VIAGRA [Suspect]
     Active Substance: SILDENAFIL CITRATE
     Indication: ERECTILE DYSFUNCTION
     Dosage: 200 MG, UNK (TOOK TWO 100MG TABLETS)
     Route: 048
     Dates: start: 20191013
  3. VIAGRA [Suspect]
     Active Substance: SILDENAFIL CITRATE
     Dosage: 100 MG, UNK
     Route: 048

REACTIONS (4)
  - Discomfort [Not Recovered/Not Resolved]
  - Intentional overdose [Unknown]
  - Erection increased [Not Recovered/Not Resolved]
  - Penile swelling [Not Recovered/Not Resolved]

NARRATIVE: CASE EVENT DATE: 20191013
